FAERS Safety Report 25279249 (Version 1)
Quarter: 2025Q2

REPORT INFORMATION
  Report Type: Report from Study
  Country: KR (occurrence: KR)
  Receive Date: 20250507
  Receipt Date: 20250507
  Transmission Date: 20250716
  Serious: Yes (Hospitalization, Other)
  Sender: TAKEDA
  Company Number: KR-TAKEDA-2025TUS043049

PATIENT
  Age: 75 Year
  Sex: Male
  Weight: 75.1 kg

DRUGS (25)
  1. VEDOLIZUMAB [Suspect]
     Active Substance: VEDOLIZUMAB
     Indication: Colitis ulcerative
  2. NITROFURANTOIN [Concomitant]
     Active Substance: NITROFURANTOIN
     Indication: Gastritis
     Dosage: 75 MILLIGRAM, BID
     Dates: start: 20210514
  3. NITROFURANTOIN [Concomitant]
     Active Substance: NITROFURANTOIN
     Indication: Prophylaxis
  4. Bioflor [Concomitant]
     Indication: Diarrhoea
     Dosage: UNK UNK, BID
     Dates: start: 20210511
  5. Bioflor [Concomitant]
     Indication: Prophylaxis
  6. Peratam [Concomitant]
     Dosage: 2 GRAM, BID
     Dates: start: 20221005, end: 20221009
  7. Rukasyn [Concomitant]
     Dosage: 750 MILLIGRAM, QD
     Dates: start: 20221004, end: 20221004
  8. Acetphen premix [Concomitant]
     Dosage: 100 MILLILITER, QD
     Dates: start: 20221004, end: 20221004
  9. MUCOMYST [Concomitant]
     Active Substance: ACETYLCYSTEINE
     Dosage: 20 PERCENT, TID
     Dates: start: 20221005, end: 20221009
  10. CHLORHEXIDINE GLUCONATE [Concomitant]
     Active Substance: CHLORHEXIDINE GLUCONATE
     Dosage: UNK UNK, QD
     Dates: start: 20221005, end: 20221009
  11. PROPACETAMOL HYDROCHLORIDE [Concomitant]
     Active Substance: PROPACETAMOL HYDROCHLORIDE
     Dosage: UNK UNK, TID
     Dates: start: 20221005, end: 20221009
  12. PANTOPRAZOLE SODIUM [Concomitant]
     Active Substance: PANTOPRAZOLE SODIUM
     Dosage: 40 MILLIGRAM, QD
     Dates: start: 20221005, end: 20221008
  13. Fullgram [Concomitant]
     Dosage: UNK UNK, TID
     Dates: start: 20221005, end: 20221009
  14. Fullgram [Concomitant]
     Dosage: UNK UNK, QID
     Dates: start: 20221009, end: 20221018
  15. Samnam loperamide [Concomitant]
     Indication: Diarrhoea
     Dosage: UNK UNK, TID
     Dates: start: 20220511, end: 20230111
  16. Samnam loperamide [Concomitant]
     Indication: Prophylaxis
  17. Curasthen [Concomitant]
     Dosage: 20 MILLILITER, BID
     Dates: start: 20221008, end: 20221009
  18. LEVODROPROPIZINE [Concomitant]
     Active Substance: LEVODROPROPIZINE
     Dosage: UNK UNK, TID
     Dates: start: 20221008, end: 20221018
  19. Pelubi [Concomitant]
     Dosage: 30 MILLIGRAM, TID
     Dates: start: 20221008, end: 20221018
  20. LAFUTIDINE [Concomitant]
     Active Substance: LAFUTIDINE
     Dosage: 10 MILLIGRAM, BID
     Dates: start: 20221009, end: 20221018
  21. Boryung meiact [Concomitant]
     Dosage: 100 GRAM, BID
     Dates: start: 20221009, end: 20221018
  22. AZATHIOPRINE [Concomitant]
     Active Substance: AZATHIOPRINE
     Dosage: 50 MILLIGRAM, QD
     Dates: start: 20210507, end: 20210521
  23. AZATHIOPRINE [Concomitant]
     Active Substance: AZATHIOPRINE
     Dosage: 50 MILLIGRAM, QD
     Dates: start: 20210522, end: 20210530
  24. AZATHIOPRINE [Concomitant]
     Active Substance: AZATHIOPRINE
     Dosage: 50 MILLIGRAM, BID
     Dates: start: 20210531
  25. COLAZAL [Concomitant]
     Active Substance: BALSALAZIDE DISODIUM
     Dosage: 750 MILLIGRAM, BID
     Dates: start: 20210507

REACTIONS (1)
  - Epiglottitis [Recovered/Resolved]

NARRATIVE: CASE EVENT DATE: 20221003
